FAERS Safety Report 13028102 (Version 4)
Quarter: 2017Q2

REPORT INFORMATION
  Report Type: Spontaneous
  Country: TR (occurrence: TR)
  Receive Date: 20161214
  Receipt Date: 20170509
  Transmission Date: 20170830
  Serious: Yes (Other)
  Sender: FDA-Public Use
  Company Number: TR-PFIZER INC-2016549170

PATIENT
  Age: 23 Year
  Sex: Male

DRUGS (1)
  1. ATIVAN [Suspect]
     Active Substance: LORAZEPAM
     Indication: OBSESSIVE-COMPULSIVE DISORDER
     Dosage: 2.5 MG, 2X/DAY (2.5 MG BEFORE SLEEPING IN THE EVENING, 2.5 MG DURING AFTERNOON) / 5 MG DAILY, LASTLY

REACTIONS (15)
  - Insomnia [Not Recovered/Not Resolved]
  - Gait disturbance [Not Recovered/Not Resolved]
  - Screaming [Not Recovered/Not Resolved]
  - Tremor [Not Recovered/Not Resolved]
  - Panic reaction [Not Recovered/Not Resolved]
  - Soliloquy [Not Recovered/Not Resolved]
  - Fear [Not Recovered/Not Resolved]
  - Musculoskeletal stiffness [Not Recovered/Not Resolved]
  - Drug use disorder [Not Recovered/Not Resolved]
  - Altered state of consciousness [Not Recovered/Not Resolved]
  - Anger [Not Recovered/Not Resolved]
  - Medication error [Not Recovered/Not Resolved]
  - Suicidal ideation [Not Recovered/Not Resolved]
  - Amnesia [Not Recovered/Not Resolved]
  - Withdrawal syndrome [Not Recovered/Not Resolved]
